FAERS Safety Report 8352586-2 (Version None)
Quarter: 2012Q2

REPORT INFORMATION
  Report Type: 
  Country: None (occurrence: None)
  Receive Date: 20120511
  Receipt Date: 20120402
  Transmission Date: 20120825
  Serious: No
  Sender: FDA-Public Use
  Company Number: US-COVIDIEN/TYCO HEALTHCARE/MALLINCKRODT-T201201395

PATIENT
  Sex: Female

DRUGS (2)
  1. FENTANYL-100 [Suspect]
     Indication: PAIN
     Dosage: 25 UG/HR, Q 3 DAYS
     Route: 062
     Dates: start: 20120101
  2. VICODIN [Concomitant]
     Indication: PAIN
     Dosage: 5/500 MG Q 6 HOURS PRN
     Route: 048

REACTIONS (1)
  - ACNE [None]
